FAERS Safety Report 8000668-7 (Version None)
Quarter: 2011Q4

REPORT INFORMATION
  Report Type: 
  Country: None (occurrence: None)
  Receive Date: 20111222
  Receipt Date: 20111216
  Transmission Date: 20120403
  Serious: Yes (Other)
  Sender: FDA-Public Use
  Company Number: NL-US-EMD SERONO, INC.-7029455

PATIENT
  Sex: Female
  Weight: 75 kg

DRUGS (7)
  1. ACETAMINOPHEN [Concomitant]
     Indication: HEADACHE
     Dates: start: 20091201
  2. AMITRIPTYLINE HCL [Concomitant]
     Indication: PAIN
     Route: 048
     Dates: start: 20100101
  3. VITAMINE D (VITAMIN D) [Concomitant]
     Indication: PRODUCT USED FOR UNKNOWN INDICATION
     Route: 048
     Dates: start: 20100101
  4. REBIF [Suspect]
     Indication: MULTIPLE SCLEROSIS
     Route: 058
     Dates: start: 20091215
  5. ETHINYLESTRADIOL/LEVONOGESTREL [Concomitant]
     Indication: CONTRACEPTION
     Route: 048
  6. AMITRIPTYLINE HCL [Concomitant]
     Indication: PARAESTHESIA
  7. ENALAPRIL MALEATE [Concomitant]
     Indication: HYPERTENSION
     Dates: start: 20111216

REACTIONS (7)
  - HEADACHE [None]
  - INJECTION SITE REACTION [None]
  - DIABETES MELLITUS [None]
  - OVARIAN CYST [None]
  - FATIGUE [None]
  - PARAESTHESIA [None]
  - URINARY TRACT INFECTION BACTERIAL [None]
